FAERS Safety Report 6299796-6 (Version None)
Quarter: 2009Q3

REPORT INFORMATION
  Report Type: 
  Country: None (occurrence: None)
  Receive Date: 20090806
  Receipt Date: 20090727
  Transmission Date: 20100115
  Serious: Yes (Other)
  Sender: FDA-Public Use
  Company Number: US-ELI_LILLY_AND_COMPANY-US200907006214

PATIENT
  Sex: Female

DRUGS (20)
  1. ZYPREXA [Suspect]
     Indication: OBSESSIVE-COMPULSIVE DISORDER
     Dosage: 10 MG, UNK
     Dates: start: 20081201
  2. ZYPREXA [Suspect]
     Dosage: 10 MG, UNK
     Dates: start: 20090427, end: 20090524
  3. ZYPREXA [Suspect]
     Dosage: 15 MG, DAILY (1/D)
     Dates: start: 20090525, end: 20090725
  4. CLONOPIN [Concomitant]
     Dosage: 1 MG, EACH MORNING
  5. CLONOPIN [Concomitant]
     Dosage: 1 MG/KG, EACH EVENING
  6. VITAMIN D [Concomitant]
     Dosage: 1 D/F, EACH MORNING
  7. VITAMIN D2 [Concomitant]
     Dosage: 1 D/F, EACH MORNING
  8. PRESERVISION LUTEIN EYE VITA.+MIN.SUP.SOFTG. [Concomitant]
     Dosage: 1 D/F, EACH MORNING
  9. LEXAPRO [Concomitant]
     Dosage: 1 D/F, EACH MORNING
  10. LEXAPRO [Concomitant]
     Dosage: 40 MG, EACH MORNING
     Dates: start: 20090620
  11. RITALIN [Concomitant]
     Dosage: 5 MG, UNK
  12. B COMPLEX ELX [Concomitant]
     Dosage: 1 D/F, EACH MORNING
  13. LACTULOSE [Concomitant]
     Dosage: 1 G, EACH EVENING
  14. BENICAR HCT [Concomitant]
     Dosage: 1 D/F, EACH EVENING
     Dates: end: 20090725
  15. PROTONIX [Concomitant]
     Dosage: 1 D/F, EACH EVENING
  16. ZOCOR [Concomitant]
     Dosage: 1 D/F, EACH EVENING
  17. OSCAL [Concomitant]
     Dosage: 1 D/F, EACH EVENING
  18. SUCRALFATE [Concomitant]
     Indication: ULCER
     Dosage: 1 G, EACH EVENING
  19. COLACE [Concomitant]
     Dosage: 1 D/F, EACH EVENING
  20. ABILIFY [Concomitant]
     Dates: end: 20090427

REACTIONS (12)
  - ACTIVITIES OF DAILY LIVING IMPAIRED [None]
  - AMNESIA [None]
  - APHASIA [None]
  - BLOOD PRESSURE DECREASED [None]
  - DIZZINESS [None]
  - DYSKINESIA [None]
  - INCREASED APPETITE [None]
  - INCREASED TENDENCY TO BRUISE [None]
  - OFF LABEL USE [None]
  - READING DISORDER [None]
  - THROMBOCYTOPENIA [None]
  - WEIGHT INCREASED [None]
